FAERS Safety Report 8602781-X (Version None)
Quarter: 2012Q3

REPORT INFORMATION
  Report Type: 
  Country: None (occurrence: None)
  Receive Date: 20120817
  Receipt Date: 20120807
  Transmission Date: 20120928
  Serious: Yes (Life-Threatening, Hospitalization, Other)
  Sender: FDA-Public Use
  Company Number: JP-JNJFOC-20120614016

PATIENT
  Sex: Male
  Weight: 51 kg

DRUGS (18)
  1. REMICADE [Suspect]
     Route: 042
     Dates: start: 20071001
  2. REMICADE [Suspect]
     Route: 042
     Dates: start: 20070820
  3. PREDNISOLONE [Concomitant]
     Route: 048
  4. VITAMIN B12 [Concomitant]
     Route: 048
  5. REMICADE [Suspect]
     Route: 042
     Dates: start: 20071126
  6. PREDNISOLONE [Concomitant]
     Route: 048
  7. REMICADE [Suspect]
     Indication: BEHCET'S SYNDROME
     Route: 042
  8. REMICADE [Suspect]
     Route: 042
     Dates: start: 20070905
  9. RABEPRAZOLE SODIUM [Concomitant]
     Route: 048
  10. ALFAROL [Concomitant]
     Route: 048
  11. NEORAL [Concomitant]
     Indication: PRODUCT USED FOR UNKNOWN INDICATION
     Route: 048
  12. MAGLAX [Concomitant]
     Route: 048
  13. VITAMIN B12 [Concomitant]
     Route: 048
  14. SANDIMMUNE [Concomitant]
     Route: 048
  15. ASPIRIN [Concomitant]
     Route: 048
  16. MAGLAX [Concomitant]
     Route: 048
  17. REMICADE [Suspect]
     Route: 042
     Dates: start: 20080124
  18. COLCHICINE [Concomitant]
     Indication: PRODUCT USED FOR UNKNOWN INDICATION
     Route: 048

REACTIONS (3)
  - HERPES ZOSTER [None]
  - DECUBITUS ULCER [None]
  - LYMPHOMA [None]
